FAERS Safety Report 20487820 (Version 1)
Quarter: 2022Q1

REPORT INFORMATION
  Report Type: Spontaneous
  Country: EG (occurrence: EG)
  Receive Date: 20220218
  Receipt Date: 20220218
  Transmission Date: 20220423
  Serious: Yes (Life-Threatening, Other)
  Sender: FDA-Public Use
  Company Number: EG-NOVOPROD-890772

PATIENT
  Age: 38 Year
  Sex: Female

DRUGS (7)
  1. LEPICOL [BIFIDOBACTERIUM BIFIDUM;INULIN;LACTOBACILLUS ACIDOPHILUS;LACT [Concomitant]
     Indication: Blood cholesterol
     Dosage: ONCE DAILY  TAB / STARTED 4 YEARS AGO
     Route: 048
  2. ACTRAPID [Suspect]
     Active Substance: INSULIN HUMAN
     Indication: Diabetes mellitus
     Dosage: 12 IU
     Route: 058
  3. KEROVIT [Concomitant]
     Indication: Vitamin supplementation
     Dosage: ONCE DAILY // STARTED 1 YEAS AGO
     Route: 048
  4. INSULATARD NPH HUMAN [Suspect]
     Active Substance: INSULIN HUMAN
     Indication: Diabetes mellitus
     Dosage: 12 IU
     Route: 058
  5. ALFACALCIDOL [Concomitant]
     Active Substance: ALFACALCIDOL
     Indication: Vitamin supplementation
     Dosage: ONCE DAILY  // 5YEARS AGO
     Route: 048
  6. DIGEST [ALPHA-D-GALACTOSIDASE;AMYLASE;CELLULASE;GLUCOAMYLASE;HEMICELLU [Concomitant]
     Indication: Abdominal discomfort
     Dosage: UNK
     Route: 048
     Dates: start: 2009
  7. GLUCOPHAGE [Concomitant]
     Active Substance: METFORMIN HYDROCHLORIDE
     Dosage: UNK
     Route: 048
     Dates: start: 2009

REACTIONS (4)
  - Hypoglycaemia [Not Recovered/Not Resolved]
  - Subcutaneous drug absorption impaired [Not Recovered/Not Resolved]
  - Injection site mass [Unknown]
  - Blood glucose fluctuation [Unknown]
